FAERS Safety Report 25818729 (Version 4)
Quarter: 2025Q4

REPORT INFORMATION
  Report Type: Report from Study
  Country: US (occurrence: US)
  Receive Date: 20250918
  Receipt Date: 20251219
  Transmission Date: 20260118
  Serious: Yes (Hospitalization, Other)
  Sender: MALLINCKRODT
  Company Number: US-MALLINCKRODT-MNK202505585

PATIENT
  Age: 57 Year
  Sex: Female

DRUGS (4)
  1. CORTICOTROPIN [Suspect]
     Active Substance: CORTICOTROPIN
     Indication: Psoriatic arthropathy
     Dosage: 80 UNITS
     Route: 030
     Dates: start: 20230419
  2. CORTICOTROPIN [Suspect]
     Active Substance: CORTICOTROPIN
     Indication: Rheumatoid arthritis
     Dosage: 80 UNITS
     Dates: start: 20250814
  3. KEVZARA [Concomitant]
     Active Substance: SARILUMAB
     Indication: Rheumatoid arthritis
     Dosage: UNKNOWN
     Dates: start: 202508
  4. VITAMIN B2 [Concomitant]
     Active Substance: RIBOFLAVIN
     Dosage: UNKNOWN

REACTIONS (10)
  - Blindness [Recovering/Resolving]
  - Ocular vasculitis [Unknown]
  - Occipital neuralgia [Unknown]
  - Dysphagia [Unknown]
  - Hiatus hernia [Unknown]
  - Arthralgia [Unknown]
  - Pain in extremity [Unknown]
  - Musculoskeletal discomfort [Unknown]
  - Blood potassium decreased [Unknown]
  - Weight increased [Unknown]

NARRATIVE: CASE EVENT DATE: 20250101
